FAERS Safety Report 5276514-1 (Version None)
Quarter: 2007Q1

REPORT INFORMATION
  Report Type: 
  Country: None (occurrence: None)
  Receive Date: 20061213
  Receipt Date: 20031212
  Transmission Date: 20070707
  Serious: No
  Sender: FDA-Public Use
  Company Number: 2003UW14387

PATIENT
  Age: 46 Year
  Sex: Female

DRUGS (1)
  1. SEROQUEL [Suspect]
     Indication: MENTAL DISORDER
     Dosage: 100 MG QD PO
     Route: 048
     Dates: start: 20001201

REACTIONS (2)
  - CHOREA [None]
  - TARDIVE DYSKINESIA [None]
